FAERS Safety Report 4354660-4 (Version None)
Quarter: 2004Q2

REPORT INFORMATION
  Report Type: 
  Country: None (occurrence: None)
  Receive Date: 20040506
  Receipt Date: 20040506
  Transmission Date: 20050107
  Serious: Yes (Death)
  Sender: FDA-Public Use
  Company Number: None

PATIENT
  Age: 56 Year
  Sex: Female
  Weight: 86.1834 kg

DRUGS (10)
  1. ONTAK [Suspect]
     Indication: NON-SMALL CELL LUNG CANCER
     Dosage: 774 MCG X 1 DAY IV
     Route: 042
     Dates: start: 20040426
  2. ONTAK [Suspect]
     Indication: NON-SMALL CELL LUNG CANCER
     Dosage: 1548 MCG X 4 DAY IV
     Route: 042
     Dates: start: 20040427, end: 20040430
  3. HYDROCHOROTHIAZIDE [Concomitant]
  4. COENZYME Q10 [Concomitant]
  5. SELENIUM TRACE METAL ADDITIVE [Concomitant]
  6. VITAMINS A,B,C [Concomitant]
  7. VITAMIN E [Concomitant]
  8. FOLIC ACID [Concomitant]
  9. ACETAMINEPHIN/DIPHENHYDRAMINE [Concomitant]
  10. GENTAMICIN [Concomitant]

REACTIONS (3)
  - HYPOTENSION [None]
  - HYPOTHERMIA [None]
  - HYPOXIA [None]
